FAERS Safety Report 16062773 (Version 14)
Quarter: 2019Q4

REPORT INFORMATION
  Report Type: Report from Study
  Country: DE (occurrence: DE)
  Receive Date: 20190312
  Receipt Date: 20191118
  Transmission Date: 20200122
  Serious: Yes (Hospitalization, Other)
  Sender: FDA-Public Use
  Company Number: DE-BRISTOL-MYERS SQUIBB COMPANY-BMS-2016-114755

PATIENT
  Age: 64 Year
  Sex: Male
  Weight: 69 kg

DRUGS (29)
  1. LYRICA [Concomitant]
     Active Substance: PREGABALIN
     Indication: METASTASES TO BONE
     Dosage: 100 MILLIGRAM, BID
     Route: 065
     Dates: start: 20150803
  2. VOTRIENT [Suspect]
     Active Substance: PAZOPANIB HYDROCHLORIDE
     Indication: METASTATIC RENAL CELL CARCINOMA
     Dosage: 800 MILLIGRAM, QD
     Route: 048
     Dates: start: 20160715, end: 20160715
  3. VOTRIENT [Suspect]
     Active Substance: PAZOPANIB HYDROCHLORIDE
     Indication: PRODUCT USED FOR UNKNOWN INDICATION
     Dosage: 800 MILLIGRAM, QD
     Route: 048
     Dates: start: 20160929, end: 20161124
  4. VOTRIENT [Suspect]
     Active Substance: PAZOPANIB HYDROCHLORIDE
     Indication: PRODUCT USED FOR UNKNOWN INDICATION
     Dosage: 800 MILLIGRAM, QD
     Route: 048
     Dates: start: 20171006, end: 20171107
  5. PANTOPRAZOL BETA [Concomitant]
     Indication: PROPHYLAXIS
     Dosage: 40 MILLIGRAM, BID
     Route: 048
     Dates: start: 201601
  6. FENISTIL [Concomitant]
     Active Substance: DIMETHINDENE
     Indication: PROPHYLAXIS
     Dosage: 1 MILLIGRAM, PRN
     Route: 048
  7. VOTRIENT [Suspect]
     Active Substance: PAZOPANIB HYDROCHLORIDE
     Indication: PRODUCT USED FOR UNKNOWN INDICATION
     Dosage: 800 MILLIGRAM, QD
     Route: 048
     Dates: start: 20170126, end: 20170404
  8. AFINITOR [Suspect]
     Active Substance: EVEROLIMUS
     Indication: PRODUCT USED FOR UNKNOWN INDICATION
     Dosage: 10 MILLIGRAM, QD
     Route: 048
     Dates: start: 20181031, end: 20190415
  9. L-THYROXINE [LEVOTHYROXINE] [Concomitant]
     Active Substance: LEVOTHYROXINE
     Indication: HYPOTHYROIDISM
     Dosage: 75 MICROGRAM, QD
     Route: 048
     Dates: end: 20160929
  10. L-THYROXINE [LEVOTHYROXINE] [Concomitant]
     Active Substance: LEVOTHYROXINE
     Indication: PRODUCT USED FOR UNKNOWN INDICATION
     Dosage: 112 MICROGRAM, QD
     Route: 048
     Dates: start: 20160929
  11. BELOC ZOK [Concomitant]
     Active Substance: METOPROLOL SUCCINATE
     Indication: ARRHYTHMIA
     Dosage: 47.5 MILLIGRAM, BID
     Route: 048
  12. NIVOLUMAB [Suspect]
     Active Substance: NIVOLUMAB
     Indication: METASTATIC RENAL CELL CARCINOMA
     Dosage: 3 MILLIGRAM/KILOGRAM
     Route: 042
     Dates: start: 20171114, end: 20180515
  13. AFINITOR [Suspect]
     Active Substance: EVEROLIMUS
     Indication: METASTATIC RENAL CELL CARCINOMA
     Dosage: 5 MILLIGRAM, QD
     Route: 048
     Dates: start: 20180416
  14. AFINITOR [Suspect]
     Active Substance: EVEROLIMUS
     Indication: PRODUCT USED FOR UNKNOWN INDICATION
     Dosage: 10 MILLIGRAM, QD
     Route: 048
     Dates: start: 20180516, end: 20180807
  15. AFINITOR [Suspect]
     Active Substance: EVEROLIMUS
     Indication: PRODUCT USED FOR UNKNOWN INDICATION
     Dosage: UNK
     Route: 065
     Dates: start: 20191004, end: 20191004
  16. PSYLLIUM HYDROPHILIC MUCILLOID [Concomitant]
     Active Substance: PSYLLIUM HUSK
     Indication: CONSTIPATION
     Dosage: 3.25 MILLIGRAM, PRN
     Route: 048
  17. VOTRIENT [Suspect]
     Active Substance: PAZOPANIB HYDROCHLORIDE
     Indication: PRODUCT USED FOR UNKNOWN INDICATION
     Dosage: 800 MILLIGRAM, QD
     Route: 048
     Dates: start: 20161125, end: 20170125
  18. AFINITOR [Suspect]
     Active Substance: EVEROLIMUS
     Indication: PRODUCT USED FOR UNKNOWN INDICATION
     Dosage: 5 MILLIGRAM, QD
     Route: 048
     Dates: start: 20190507, end: 20190616
  19. VOTRIENT [Suspect]
     Active Substance: PAZOPANIB HYDROCHLORIDE
     Indication: PRODUCT USED FOR UNKNOWN INDICATION
     Dosage: 800 MILLIGRAM, QD
     Route: 048
     Dates: start: 20170713, end: 20171005
  20. AFINITOR [Suspect]
     Active Substance: EVEROLIMUS
     Indication: PRODUCT USED FOR UNKNOWN INDICATION
     Dosage: 10 MILLIGRAM, QD
     Route: 048
     Dates: start: 20180808, end: 20181030
  21. AFINITOR [Suspect]
     Active Substance: EVEROLIMUS
     Indication: PRODUCT USED FOR UNKNOWN INDICATION
     Dosage: 10 MILLIGRAM, QD
     Route: 048
     Dates: start: 20190123, end: 20190415
  22. AFINITOR [Suspect]
     Active Substance: EVEROLIMUS
     Indication: PRODUCT USED FOR UNKNOWN INDICATION
     Dosage: 5 MILLIGRAM, QD
     Route: 048
     Dates: start: 20190710, end: 20191001
  23. ZOMETA [Suspect]
     Active Substance: ZOLEDRONIC ACID
     Indication: METASTASES TO BONE
     Dosage: 4 MILLIGRAM, QMO
     Route: 042
     Dates: start: 20131112, end: 20180507
  24. HCT-BETA [Concomitant]
     Indication: HYPERTENSION
     Dosage: 25 MILLIGRAM, QD
     Route: 048
  25. ALLOPURINOL. [Concomitant]
     Active Substance: ALLOPURINOL
     Indication: CHRONIC KIDNEY DISEASE
     Dosage: 300 MILLIGRAM, QD
     Route: 048
  26. VOTRIENT [Suspect]
     Active Substance: PAZOPANIB HYDROCHLORIDE
     Indication: PRODUCT USED FOR UNKNOWN INDICATION
     Dosage: 800 MILLIGRAM, QD
     Route: 048
     Dates: start: 20170405, end: 20170712
  27. AFINITOR [Suspect]
     Active Substance: EVEROLIMUS
     Indication: PRODUCT USED FOR UNKNOWN INDICATION
     Dosage: 5 MILLIGRAM, QD
     Route: 048
     Dates: start: 20190417, end: 20191003
  28. LENVATINIB [Suspect]
     Active Substance: LENVATINIB
     Indication: RENAL CELL CARCINOMA
     Dosage: 10 MILLIGRAM, QD
     Route: 048
     Dates: start: 20190213
  29. ZOPICLONE [Concomitant]
     Active Substance: ZOPICLONE
     Indication: SLEEP DISORDER
     Dosage: 7.5 MILLIGRAM, PRN
     Route: 048

REACTIONS (23)
  - Blood creatinine increased [Recovering/Resolving]
  - Soft tissue infection [Unknown]
  - Bone disorder [Unknown]
  - Constipation [Not Recovered/Not Resolved]
  - Nausea [Recovered/Resolved]
  - Osteonecrosis of jaw [Not Recovered/Not Resolved]
  - Hypothyroidism [Recovered/Resolved]
  - Abdominal distension [Recovering/Resolving]
  - Vomiting [Not Recovered/Not Resolved]
  - Impaired healing [Recovered/Resolved]
  - Skin swelling [Unknown]
  - Hypertension [Not Recovered/Not Resolved]
  - Anaemia [Recovered/Resolved]
  - Blood urea increased [Not Recovered/Not Resolved]
  - Leukopenia [Not Recovered/Not Resolved]
  - Rash [Not Recovered/Not Resolved]
  - Palmar-plantar erythrodysaesthesia syndrome [Recovered/Resolved]
  - Acute sinusitis [Recovered/Resolved]
  - Oral herpes [Recovering/Resolving]
  - Decreased appetite [Not Recovered/Not Resolved]
  - Gout [Recovering/Resolving]
  - Diarrhoea [Not Recovered/Not Resolved]
  - Skin oedema [Unknown]

NARRATIVE: CASE EVENT DATE: 20160722
